FAERS Safety Report 22989230 (Version 4)
Quarter: 2023Q4

REPORT INFORMATION
  Report Type: Spontaneous
  Country: GB (occurrence: GB)
  Receive Date: 20230927
  Receipt Date: 20231229
  Transmission Date: 20240110
  Serious: Yes (Hospitalization, Other)
  Sender: FDA-Public Use
  Company Number: GB-JNJFOC-20230958389

PATIENT
  Age: 89 Year
  Sex: Female

DRUGS (2)
  1. SIMPONI [Suspect]
     Active Substance: GOLIMUMAB
     Indication: Rheumatoid arthritis
     Route: 058
  2. PREGABALIN [Concomitant]
     Active Substance: PREGABALIN
     Route: 065

REACTIONS (7)
  - General physical condition abnormal [Unknown]
  - Hip arthroplasty [Unknown]
  - Surgery [Unknown]
  - Product dose omission issue [Unknown]
  - Metabolic disorder [Unknown]
  - Peripheral swelling [Unknown]
  - Secretion discharge [Unknown]
